FAERS Safety Report 9542168 (Version 2)
Quarter: 2014Q1

REPORT INFORMATION
  Report Type: Spontaneous
  Country: GB (occurrence: GB)
  Receive Date: 20130923
  Receipt Date: 20140324
  Transmission Date: 20141002
  Serious: Yes (Other)
  Sender: FDA-Public Use
  Company Number: GB-ELI_LILLY_AND_COMPANY-GB201309003389

PATIENT
  Age: 78 Year
  Sex: Female

DRUGS (6)
  1. OLANZAPINE [Suspect]
     Indication: HALLUCINATION, VISUAL
     Dosage: 1 DF, UNKNOWN
     Route: 065
  2. RAMIPRIL [Suspect]
     Indication: PRODUCT USED FOR UNKNOWN INDICATION
     Dosage: 1 DF, UNKNOWN
     Route: 065
  3. RAMIPRIL [Suspect]
  4. LOSARTAN [Suspect]
     Indication: PRODUCT USED FOR UNKNOWN INDICATION
     Dosage: 1 DF, UNKNOWN
     Route: 065
  5. SERTRALINE [Suspect]
     Indication: PRODUCT USED FOR UNKNOWN INDICATION
     Dosage: 1 DF, UNKNOWN
     Route: 065
  6. SERTRALINE [Suspect]

REACTIONS (13)
  - Confusional state [Unknown]
  - Condition aggravated [Unknown]
  - Hallucination [Unknown]
  - Pallor [Unknown]
  - Infection [Unknown]
  - Constipation [Unknown]
  - Back pain [Unknown]
  - Feeling cold [Unknown]
  - Suspiciousness [Unknown]
  - Fall [Unknown]
  - Sopor [Unknown]
  - Gait disturbance [Unknown]
  - Off label use [Unknown]
